FAERS Safety Report 4634189-6 (Version None)
Quarter: 2005Q2

REPORT INFORMATION
  Report Type: 
  Country: None (occurrence: None)
  Receive Date: 20050413
  Receipt Date: 20050401
  Transmission Date: 20051028
  Serious: Yes (Death)
  Sender: FDA-Public Use
  Company Number: GB-BRISTOL-MYERS SQUIBB COMPANY-12918694

PATIENT
  Age: 72 Year
  Sex: Female

DRUGS (11)
  1. ABILIFY [Suspect]
     Indication: SCHIZOPHRENIA
     Route: 048
     Dates: start: 20050126
  2. SENNA [Concomitant]
  3. MOVELAT [Concomitant]
  4. LACTULOSE [Concomitant]
  5. PERINDOPRIL [Concomitant]
     Route: 048
     Dates: start: 20040615
  6. ASPIRIN [Concomitant]
     Route: 048
     Dates: start: 20040616
  7. SIMVASTATIN [Concomitant]
     Route: 048
     Dates: start: 20040616
  8. DETRUSITOL [Concomitant]
     Route: 048
     Dates: start: 20031217
  9. BECLOMETHASONE [Concomitant]
     Route: 055
     Dates: start: 20031212
  10. ADIZEM [Concomitant]
     Route: 048
     Dates: start: 19991012
  11. SALBUTAMOL [Concomitant]
     Route: 055
     Dates: start: 19960801

REACTIONS (1)
  - DEATH [None]
